FAERS Safety Report 14073720 (Version 1)
Quarter: 2017Q4

REPORT INFORMATION
  Report Type: Spontaneous
  Country: US (occurrence: None)
  Receive Date: 20171011
  Receipt Date: 20171011
  Transmission Date: 20180321
  Serious: Yes (Other)
  Sender: FDA-Public Use
  Company Number: None

PATIENT
  Age: 64 Year
  Sex: Female
  Weight: 72.57 kg

DRUGS (14)
  1. SOMA [Concomitant]
     Active Substance: CARISOPRODOL
  2. VALIUM [Concomitant]
     Active Substance: DIAZEPAM
  3. IRBESARTAN. [Concomitant]
     Active Substance: IRBESARTAN
  4. VITAMIN C [Concomitant]
     Active Substance: ASCORBIC ACID
  5. GLUCOSAMINE CHONDROTIN [Concomitant]
     Active Substance: CHONDROITIN SULFATE (BOVINE)\GLUCOSAMINE SULFATE
  6. ACIDOPHILUS [Concomitant]
     Active Substance: LACTOBACILLUS ACIDOPHILUS
  7. VITAMIN B6 [Concomitant]
     Active Substance: PYRIDOXINE HYDROCHLORIDE
  8. VITAMIN B12 [Concomitant]
     Active Substance: CYANOCOBALAMIN
  9. FISH OIL [Concomitant]
     Active Substance: FISH OIL
  10. IRBESARTAN 75MG (SUBSTITUTED FOR PRESCRIP. PRODUCT: AVAPRO 75MG [Suspect]
     Active Substance: IRBESARTAN
     Indication: HYPERTENSION
     Route: 048
     Dates: start: 20170824
  11. AMBIEN [Concomitant]
     Active Substance: ZOLPIDEM TARTRATE
  12. CALCIUM [Concomitant]
     Active Substance: CALCIUM
  13. CRANBERRY. [Concomitant]
     Active Substance: CRANBERRY
  14. SIMVASTATIN. [Concomitant]
     Active Substance: SIMVASTATIN

REACTIONS (8)
  - Product quality issue [None]
  - Ear discomfort [None]
  - Blood pressure fluctuation [None]
  - Thinking abnormal [None]
  - Dizziness [None]
  - Presyncope [None]
  - Head discomfort [None]
  - Disorientation [None]

NARRATIVE: CASE EVENT DATE: 20170919
